FAERS Safety Report 15892284 (Version 1)
Quarter: 2019Q1

REPORT INFORMATION
  Report Type: Spontaneous
  Country: DE (occurrence: DE)
  Receive Date: 20190130
  Receipt Date: 20190130
  Transmission Date: 20190417
  Serious: No
  Sender: FDA-Public Use
  Company Number: DE-IPSEN-CABO-18014533

PATIENT
  Age: 25 Year
  Sex: Female

DRUGS (1)
  1. CABOMETYX [Suspect]
     Active Substance: CABOZANTINIB S-MALATE
     Indication: METASTATIC RENAL CELL CARCINOMA
     Dosage: 60 MG, UNK
     Dates: start: 201802

REACTIONS (9)
  - Hyperhidrosis [Unknown]
  - Confusional state [Unknown]
  - Weight decreased [Unknown]
  - Vomiting [Unknown]
  - Malaise [Unknown]
  - Diarrhoea [Unknown]
  - Sleep disorder [Unknown]
  - Nasopharyngitis [Unknown]
  - Headache [Unknown]
